FAERS Safety Report 6379957-8 (Version None)
Quarter: 2009Q3

REPORT INFORMATION
  Report Type: 
  Country: None (occurrence: None)
  Receive Date: 20090928
  Receipt Date: 20090918
  Transmission Date: 20100115
  Serious: No
  Sender: FDA-Public Use
  Company Number: US-B.I. PHARMACEUTICALS,INC./RIDGEFIELD-2009-BP-11123BP

PATIENT
  Sex: Female

DRUGS (1)
  1. MIRAPEX [Suspect]
     Indication: PARKINSON'S DISEASE
     Dates: start: 19980101, end: 20040101

REACTIONS (4)
  - DEPRESSION [None]
  - GAIT DISTURBANCE [None]
  - PATHOLOGICAL GAMBLING [None]
  - TREMOR [None]
